FAERS Safety Report 8319818-8 (Version None)
Quarter: 2012Q1

REPORT INFORMATION
  Report Type: 
  Country: None (occurrence: None)
  Receive Date: 20120315
  Receipt Date: 20110222
  Transmission Date: 20120608
  Serious: Yes (Other)
  Sender: FDA-Public Use
  Company Number: PHHY2011US08611

PATIENT
  Age: 57 Year
  Sex: Female
  Weight: 80.7 kg

DRUGS (5)
  1. GILENYA [Suspect]
     Indication: MULTIPLE SCLEROSIS
     Dosage: 0.5 MG, QD, ORAL 0.5 MG, QD, ORAL
     Route: 048
     Dates: start: 20101025
  2. VAGIFEM [Concomitant]
  3. ASPIRIN [Concomitant]
  4. VITAMIN D [Concomitant]
  5. VESICARE [Concomitant]

REACTIONS (1)
  - HEART RATE DECREASED [None]
